FAERS Safety Report 21543050 (Version 1)
Quarter: 2022Q4

REPORT INFORMATION
  Report Type: Spontaneous
  Country: US (occurrence: US)
  Receive Date: 20221102
  Receipt Date: 20221102
  Transmission Date: 20230112
  Serious: No
  Sender: FDA-Public Use
  Company Number: US-SMITH AND NEPHEW, INC-2016SMT00108

PATIENT
  Age: 61 Year
  Sex: Male
  Weight: 120.18 kg

DRUGS (7)
  1. REGRANEX [Suspect]
     Active Substance: BECAPLERMIN
     Indication: Wound
     Dosage: UNK UNK, 1X/DAY
     Route: 061
     Dates: start: 201512, end: 201601
  2. NOVOLOG [Concomitant]
     Active Substance: INSULIN ASPART
  3. LANTUS [Concomitant]
     Active Substance: INSULIN GLARGINE
     Dosage: 46 ENZYME UNIT
  4. CRESTOR [Concomitant]
     Active Substance: ROSUVASTATIN CALCIUM
  5. UNSPECIFIED INGREDIENT [Concomitant]
     Active Substance: UNSPECIFIED INGREDIENT
     Indication: Blood pressure measurement
  6. NEW UNSPECIFIED DIABETES MEDICATION (starts with the letter ^J^) [Concomitant]
  7. NEW UNSPECIFIED DIABETES MEDICATION (shot; starts with the letter ^B^) [Concomitant]

REACTIONS (3)
  - Drug ineffective [Unknown]
  - Wound complication [Unknown]
  - Incorrect product administration duration [Not Recovered/Not Resolved]

NARRATIVE: CASE EVENT DATE: 20151201
